FAERS Safety Report 5529965-1 (Version None)
Quarter: 2007Q4

REPORT INFORMATION
  Report Type: 
  Country: None (occurrence: None)
  Receive Date: 20071129
  Receipt Date: 20071120
  Transmission Date: 20080405
  Serious: Yes (Hospitalization)
  Sender: FDA-Public Use
  Company Number: GB-MERCK-0711GBR00094

PATIENT
  Age: 52 Year
  Sex: Male

DRUGS (5)
  1. COZAAR [Suspect]
     Route: 048
  2. COZAAR [Suspect]
     Route: 048
  3. AMLODIPINE BESYLATE [Suspect]
     Route: 065
  4. ZOPICLONE [Suspect]
     Route: 065
  5. ATENOLOL [Suspect]
     Route: 065

REACTIONS (2)
  - ATRIOVENTRICULAR BLOCK FIRST DEGREE [None]
  - OVERDOSE [None]
